FAERS Safety Report 8486006-4 (Version None)
Quarter: 2012Q3

REPORT INFORMATION
  Report Type: 
  Country: None (occurrence: None)
  Receive Date: 20120703
  Receipt Date: 20120628
  Transmission Date: 20120928
  Serious: Yes (Hospitalization, Other)
  Sender: FDA-Public Use
  Company Number: SE-AMGEN-SWESP2012002980

PATIENT
  Age: 73 Year
  Sex: Female

DRUGS (11)
  1. PROLIA [Suspect]
     Indication: OSTEOPOROSIS
     Dosage: UNK
     Dates: start: 20120102, end: 20120102
  2. PROLIA [Suspect]
     Indication: STEROID THERAPY
  3. CORTISONE ACETATE [Concomitant]
     Indication: SYSTEMIC LUPUS ERYTHEMATOSUS
     Dosage: UNK
  4. RISEDRONATE SODIUM [Concomitant]
     Indication: OSTEOPOROSIS
     Dosage: UNK UNK, QWK
  5. Q10 [Concomitant]
  6. ATACAND [Concomitant]
     Indication: HYPERTENSION
     Dosage: UNK
  7. KALCIPOS-D [Concomitant]
  8. VITAMIN B-12 [Concomitant]
     Dosage: 1 DF, Q2MO
  9. CORTISONE ACETATE [Concomitant]
     Indication: SJOGREN'S SYNDROME
  10. ACETAMINOPHEN W/ CODEINE [Concomitant]
     Indication: PAIN
     Dosage: UNK UNK, PRN
  11. EYE Q [Concomitant]

REACTIONS (15)
  - DEAFNESS [None]
  - PAIN [None]
  - THINKING ABNORMAL [None]
  - FAECAL INCONTINENCE [None]
  - HYPOAESTHESIA [None]
  - FATIGUE [None]
  - INVESTIGATION [None]
  - MALAISE [None]
  - BALANCE DISORDER [None]
  - TINNITUS [None]
  - URINARY INCONTINENCE [None]
  - MOTOR DYSFUNCTION [None]
  - PARAESTHESIA [None]
  - DIZZINESS [None]
  - AMNESIA [None]
